FAERS Safety Report 18793342 (Version 1)
Quarter: 2021Q1

REPORT INFORMATION
  Report Type: Spontaneous
  Country: CA (occurrence: CA)
  Receive Date: 20210127
  Receipt Date: 20210127
  Transmission Date: 20210419
  Serious: Yes (Other)
  Sender: FDA-Public Use
  Company Number: CA-GLAXOSMITHKLINE-CA2021AMR015219

PATIENT
  Age: 76 Year
  Sex: Female

DRUGS (10)
  1. ESBRIET [Suspect]
     Active Substance: PIRFENIDONE
     Indication: IDIOPATHIC PULMONARY FIBROSIS
     Dosage: 267 MG, TID
     Route: 048
  2. LORAZEPAM. [Concomitant]
     Active Substance: LORAZEPAM
     Indication: PRODUCT USED FOR UNKNOWN INDICATION
     Dosage: UNK
  3. SOLIFENACIN [Concomitant]
     Active Substance: SOLIFENACIN
     Indication: PRODUCT USED FOR UNKNOWN INDICATION
     Dosage: UNK
  4. PROPRANOLOL [Concomitant]
     Active Substance: PROPRANOLOL HYDROCHLORIDE
     Indication: PRODUCT USED FOR UNKNOWN INDICATION
     Dosage: UNK
  5. DESOXIMETASONE. [Suspect]
     Active Substance: DESOXIMETASONE
     Indication: PRODUCT USED FOR UNKNOWN INDICATION
     Dosage: UNK
  6. ESBRIET [Suspect]
     Active Substance: PIRFENIDONE
     Dosage: 267 MG, QD
     Route: 048
  7. PANTOPRAZOLE [Concomitant]
     Active Substance: PANTOPRAZOLE
     Indication: PRODUCT USED FOR UNKNOWN INDICATION
     Dosage: UNK
  8. PREMARIN [Concomitant]
     Active Substance: ESTROGENS, CONJUGATED
     Indication: PRODUCT USED FOR UNKNOWN INDICATION
     Dosage: UNK
  9. SALBUTAMOL [Suspect]
     Active Substance: ALBUTEROL
     Indication: PRODUCT USED FOR UNKNOWN INDICATION
     Dosage: UNK
  10. FOSINOPRIL [Concomitant]
     Active Substance: FOSINOPRIL
     Indication: PRODUCT USED FOR UNKNOWN INDICATION
     Dosage: UNK

REACTIONS (30)
  - Body temperature increased [Unknown]
  - Chills [Unknown]
  - Gastrointestinal disorder [Unknown]
  - General physical health deterioration [Unknown]
  - Apathy [Unknown]
  - Heart rate increased [Unknown]
  - Nausea [Unknown]
  - Frustration tolerance decreased [Unknown]
  - Hyperchlorhydria [Unknown]
  - Loss of personal independence in daily activities [Unknown]
  - Muscle spasms [Unknown]
  - Skin discolouration [Unknown]
  - Cyanosis [Unknown]
  - Decreased appetite [Unknown]
  - Dizziness [Unknown]
  - Dry mouth [Unknown]
  - Hyperhidrosis [Unknown]
  - Rash pruritic [Unknown]
  - Dyspnoea [Unknown]
  - Immunodeficiency [Unknown]
  - Malaise [Unknown]
  - Oxygen saturation decreased [Unknown]
  - Depressed mood [Unknown]
  - Fatigue [Unknown]
  - Renal cyst [Unknown]
  - Renal disorder [Unknown]
  - Dyspepsia [Unknown]
  - Oxygen saturation abnormal [Unknown]
  - Rash [Unknown]
  - Drug ineffective [Unknown]
